FAERS Safety Report 5500124-1 (Version None)
Quarter: 2007Q4

REPORT INFORMATION
  Report Type: 
  Country: None (occurrence: None)
  Receive Date: 20071025
  Receipt Date: 20071015
  Transmission Date: 20080405
  Serious: Yes (Death)
  Sender: FDA-Public Use
  Company Number: FABR-12227

PATIENT
  Age: 61 Year
  Sex: Female
  Weight: 41 kg

DRUGS (3)
  1. FABRAZYME [Suspect]
     Indication: FABRY'S DISEASE
     Dosage: 40 MG Q2WKS IV
     Route: 042
     Dates: start: 20070912, end: 20070926
  2. VALSARTAN [Concomitant]
  3. CARVEDILOL [Concomitant]

REACTIONS (3)
  - CARDIAC ARREST [None]
  - SUDDEN DEATH [None]
  - VENTRICULAR FIBRILLATION [None]
